FAERS Safety Report 19873039 (Version 3)
Quarter: 2022Q1

REPORT INFORMATION
  Report Type: Report from Study
  Country: DE (occurrence: DE)
  Receive Date: 20210923
  Receipt Date: 20220315
  Transmission Date: 20220423
  Serious: Yes (Other)
  Sender: FDA-Public Use
  Company Number: DE-ELI_LILLY_AND_COMPANY-DE202010004845

PATIENT
  Age: 53 Year
  Sex: Female

DRUGS (3)
  1. TERIPARATIDE [Suspect]
     Active Substance: TERIPARATIDE
     Indication: Osteoporosis
     Dosage: UNK UNK, DAILY
     Route: 058
     Dates: start: 20200708
  2. TERIPARATIDE [Suspect]
     Active Substance: TERIPARATIDE
     Dosage: UNK UNK, DAILY
     Route: 058
  3. TRAMADOL [Concomitant]
     Active Substance: TRAMADOL
     Indication: Fracture pain
     Dosage: UNK UNK, UNKNOWN

REACTIONS (13)
  - Spinal disorder [Unknown]
  - Fall [Unknown]
  - Renal impairment [Unknown]
  - Blood creatinine increased [Unknown]
  - Arthralgia [Not Recovered/Not Resolved]
  - Contusion [Not Recovered/Not Resolved]
  - Myalgia [Not Recovered/Not Resolved]
  - Blood calcium abnormal [Not Recovered/Not Resolved]
  - Pain in extremity [Unknown]
  - Sciatica [Unknown]
  - Mobility decreased [Unknown]
  - Hypoaesthesia [Unknown]
  - Headache [Recovered/Resolved]
